FAERS Safety Report 7129607-8 (Version None)
Quarter: 2010Q4

REPORT INFORMATION
  Report Type: 
  Country: None (occurrence: None)
  Receive Date: 20101130
  Receipt Date: 20101118
  Transmission Date: 20110411
  Serious: Yes (Hospitalization)
  Sender: FDA-Public Use
  Company Number: US-ASTRAZENECA-2009UW06923

PATIENT
  Age: 52 Year
  Sex: Female

DRUGS (3)
  1. SEROQUEL [Suspect]
     Dosage: 50 MG IN THE MORNING AND 400 MG AT NIGHT
     Route: 048
     Dates: start: 20000101
  2. DIAZEPAM [Concomitant]
  3. EFFEXOR XR [Concomitant]

REACTIONS (2)
  - DYSTONIA [None]
  - ROAD TRAFFIC ACCIDENT [None]
